FAERS Safety Report 14576166 (Version 1)
Quarter: 2018Q1

REPORT INFORMATION
  Report Type: Spontaneous
  Country: JP (occurrence: JP)
  Receive Date: 20180227
  Receipt Date: 20180227
  Transmission Date: 20180509
  Serious: Yes (Hospitalization)
  Sender: FDA-Public Use
  Company Number: JP-ROCHE-2079914

PATIENT
  Age: 2 Decade
  Sex: Female

DRUGS (7)
  1. PREDNISOLONE. [Concomitant]
     Active Substance: PREDNISOLONE
     Dosage: DOSAGE IS UNCERTAIN.
     Route: 065
  2. NEORAL [Concomitant]
     Active Substance: CYCLOSPORINE
     Indication: LUPUS NEPHRITIS
     Dosage: DOSAGE IS UNCERTAIN.
     Route: 065
  3. PLAQUENIL [Concomitant]
     Active Substance: HYDROXYCHLOROQUINE SULFATE
     Indication: LUPUS NEPHRITIS
     Dosage: DOSAGE IS UNCERTAIN.
     Route: 065
  4. CELLCEPT [Suspect]
     Active Substance: MYCOPHENOLATE MOFETIL\MYCOPHENOLATE MOFETIL HYDROCHLORIDE
     Dosage: DOSE INTERVAL UNCERTAINTY
     Route: 048
     Dates: end: 2018
  5. CELLCEPT [Suspect]
     Active Substance: MYCOPHENOLATE MOFETIL\MYCOPHENOLATE MOFETIL HYDROCHLORIDE
     Indication: LUPUS NEPHRITIS
     Dosage: DOSE INTERVAL UNCERTAINTY
     Route: 048
  6. PREDNISOLONE. [Concomitant]
     Active Substance: PREDNISOLONE
     Dosage: DOSE INTERVAL UNCERTAINTY
     Route: 065
     Dates: start: 2018
  7. PREDNISOLONE. [Concomitant]
     Active Substance: PREDNISOLONE
     Dosage: DOSE INTERVAL UNCERTAINTY
     Route: 065

REACTIONS (2)
  - Central nervous system lupus [Unknown]
  - Drug ineffective [Unknown]

NARRATIVE: CASE EVENT DATE: 20180130
